FAERS Safety Report 7013499-1 (Version None)
Quarter: 2010Q3

REPORT INFORMATION
  Report Type: 
  Country: None (occurrence: None)
  Receive Date: 20100924
  Receipt Date: 20100917
  Transmission Date: 20110219
  Serious: Yes (Disabling)
  Sender: FDA-Public Use
  Company Number: US-BAYER-201034215NA

PATIENT
  Age: 44 Year
  Sex: Female

DRUGS (2)
  1. AVELOX [Suspect]
     Indication: EAR INFECTION
     Dosage: TOTAL DAILY DOSE: 200 MG  UNIT DOSE: 200 MG
     Route: 048
     Dates: start: 20100917, end: 20100917
  2. AVELOX [Suspect]
     Dosage: TOTAL DAILY DOSE: 400 MG  UNIT DOSE: 400 MG
     Route: 048
     Dates: start: 20100916, end: 20100916

REACTIONS (5)
  - DYSPEPSIA [None]
  - EXTREMITY CONTRACTURE [None]
  - FEELING ABNORMAL [None]
  - MUSCLE SPASMS [None]
  - VOMITING [None]
